FAERS Safety Report 20411286 (Version 1)
Quarter: 2022Q1

REPORT INFORMATION
  Report Type: Spontaneous
  Country: US (occurrence: None)
  Receive Date: 20220201
  Receipt Date: 20220201
  Transmission Date: 20220424
  Serious: Yes (Other)
  Sender: FDA-Public Use
  Company Number: None

PATIENT
  Age: 29 Year
  Sex: Female
  Weight: 55.79 kg

DRUGS (4)
  1. SEROQUEL [Suspect]
     Active Substance: QUETIAPINE FUMARATE
  2. LITHOBID [Suspect]
     Active Substance: LITHIUM CARBONATE
  3. SYNTHROID [Suspect]
     Active Substance: LEVOTHYROXINE SODIUM
  4. KLONOPIN [Suspect]
     Active Substance: CLONAZEPAM

REACTIONS (1)
  - Preterm premature rupture of membranes [None]

NARRATIVE: CASE EVENT DATE: 20200416
